FAERS Safety Report 14694163 (Version 1)
Quarter: 2018Q1

REPORT INFORMATION
  Report Type: Spontaneous
  Country: US (occurrence: US)
  Receive Date: 20180329
  Receipt Date: 20180329
  Transmission Date: 20180509
  Serious: Yes (Other)
  Sender: FDA-Public Use
  Company Number: US-MYLANLABS-2018M1018271

PATIENT
  Age: 52 Year
  Sex: Female

DRUGS (1)
  1. EPIPEN [Suspect]
     Active Substance: EPINEPHRINE
     Indication: ANAPHYLACTIC REACTION
     Dosage: UNK

REACTIONS (5)
  - Injection site swelling [Unknown]
  - Device failure [Unknown]
  - Injection site pain [Unknown]
  - Drug ineffective [Unknown]
  - Injection site haemorrhage [Unknown]
